FAERS Safety Report 24201967 (Version 1)
Quarter: 2024Q3

REPORT INFORMATION
  Report Type: Report from Study
  Country: DE (occurrence: None)
  Receive Date: 20240812
  Receipt Date: 20240812
  Transmission Date: 20241016
  Serious: Yes (Death, Life-Threatening)
  Sender: ASTRAZENECA
  Company Number: 2021A307727

PATIENT
  Sex: Female
  Weight: 49.5 kg

DRUGS (2)
  1. FULVESTRANT [Suspect]
     Active Substance: FULVESTRANT
     Indication: Breast cancer metastatic
     Dosage: 500 MG, Q4W (DAILY DOSE)
     Route: 030
     Dates: start: 20210111
  2. KISQALI [Suspect]
     Active Substance: RIBOCICLIB
     Indication: Breast cancer metastatic
     Dosage: 400 MG, DAILY DOSE (SCHEMA 21 DAYS INTAKE, 7 DAYS PAUSE)
     Route: 048
     Dates: start: 20210126

REACTIONS (3)
  - Neutropenia [Recovered/Resolved]
  - Trichoglossia [Not Recovered/Not Resolved]
  - Death [Fatal]

NARRATIVE: CASE EVENT DATE: 20210208
